FAERS Safety Report 4446245-6 (Version None)
Quarter: 2004Q3

REPORT INFORMATION
  Report Type: 
  Country: None (occurrence: None)
  Receive Date: 20040907
  Receipt Date: 20040820
  Transmission Date: 20050211
  Serious: Yes (Hospitalization)
  Sender: FDA-Public Use
  Company Number: 04P-163-0271181-00

PATIENT
  Age: 7 Year
  Sex: Male

DRUGS (4)
  1. DEPAKOTE [Suspect]
     Indication: MOOD ALTERED
     Dosage: 250 MG, 4 IN 1 D, PER ORAL
     Route: 048
     Dates: end: 20040814
  2. ABILIFY [Concomitant]
  3. CHLORPROMAZINE [Concomitant]
  4. QUETIAPINE [Concomitant]

REACTIONS (3)
  - ANTICONVULSANT DRUG LEVEL INCREASED [None]
  - LYMPHOCYTE COUNT INCREASED [None]
  - NEUTROPHIL COUNT DECREASED [None]
